FAERS Safety Report 18326927 (Version 1)
Quarter: 2020Q3

REPORT INFORMATION
  Report Type: Spontaneous
  Country: CA (occurrence: CA)
  Receive Date: 20200930
  Receipt Date: 20200930
  Transmission Date: 20201103
  Serious: Yes (Other)
  Sender: FDA-Public Use
  Company Number: CA-CELLTRION INC.-2020CA028259

PATIENT

DRUGS (7)
  1. INFLECTRA [Suspect]
     Active Substance: INFLIXIMAB-DYYB
     Indication: CROHN^S DISEASE
     Dosage: 400 MG
     Route: 042
  2. PREDNISONE. [Suspect]
     Active Substance: PREDNISONE
     Dosage: UNK
     Route: 065
  3. AMOXICILLIN;CLAVULANATE POTASSIUM [Suspect]
     Active Substance: AMOXICILLIN\CLAVULANATE POTASSIUM
     Dosage: UNK
     Route: 065
  4. KEFLEX [Suspect]
     Active Substance: CEPHALEXIN
     Dosage: UNK
     Route: 065
  5. AMOXICILLIN. [Suspect]
     Active Substance: AMOXICILLIN
     Indication: ABSCESS
     Dosage: UNK
     Route: 065
  6. FLAGYL [Suspect]
     Active Substance: METRONIDAZOLE\METRONIDAZOLE HYDROCHLORIDE
     Dosage: UNK
     Route: 065
  7. CIPROFLOXACIN HCL [Suspect]
     Active Substance: CIPROFLOXACIN HYDROCHLORIDE
     Dosage: UNK
     Route: 065

REACTIONS (13)
  - Anal abscess [Unknown]
  - Contraindicated product administered [Unknown]
  - Abdominal pain [Unknown]
  - Crohn^s disease [Unknown]
  - Therapeutic product effect incomplete [Unknown]
  - Anal fissure [Unknown]
  - Vaginal haemorrhage [Unknown]
  - Vaginal fistula [Unknown]
  - Drug hypersensitivity [Unknown]
  - Exposure during pregnancy [Unknown]
  - Vulvovaginal pain [Unknown]
  - Abscess drainage [Unknown]
  - Malaise [Unknown]
